FAERS Safety Report 6955781-X (Version None)
Quarter: 2010Q3

REPORT INFORMATION
  Report Type: 
  Country: None (occurrence: None)
  Receive Date: 20100826
  Receipt Date: 20100826
  Transmission Date: 20110219
  Serious: No
  Sender: FDA-Public Use
  Company Number: None

PATIENT
  Age: 60 Year
  Sex: Female
  Weight: 68.0396 kg

DRUGS (1)
  1. METOCLOPRAMIDE [Suspect]
     Indication: GASTROOESOPHAGEAL REFLUX DISEASE
     Dosage: 10MG TWICE A DAY PO
     Route: 048
     Dates: start: 20010101, end: 20090101

REACTIONS (4)
  - ANXIETY [None]
  - DEPRESSION [None]
  - DYSKINESIA [None]
  - TARDIVE DYSKINESIA [None]
